FAERS Safety Report 5753960-0 (Version None)
Quarter: 2008Q2

REPORT INFORMATION
  Report Type: 
  Country: None (occurrence: None)
  Receive Date: 20080527
  Receipt Date: 20080507
  Transmission Date: 20081010
  Serious: Yes (Hospitalization)
  Sender: FDA-Public Use
  Company Number: 2008VX000857

PATIENT
  Age: 77 Year
  Sex: Male

DRUGS (8)
  1. FLURAZEPAM HCL [Suspect]
     Indication: SLEEP DISORDER
     Dosage: PO
     Route: 048
  2. PANTOPRAZOLE SODIUM [Concomitant]
  3. ASPIRIN [Concomitant]
  4. ESCITALOPRAM [Concomitant]
  5. CLEXANE [Concomitant]
  6. SEROQUEL [Concomitant]
  7. OXYGEN [Concomitant]
  8. DICLOFENAC SODIUM [Concomitant]

REACTIONS (6)
  - CARDIAC DISORDER [None]
  - LUNG DISORDER [None]
  - OVERDOSE [None]
  - PLEURAL EFFUSION [None]
  - PNEUMONIA ASPIRATION [None]
  - SEDATION [None]
